FAERS Safety Report 4459567-X (Version None)
Quarter: 2004Q3

REPORT INFORMATION
  Report Type: 
  Country: None (occurrence: None)
  Receive Date: 20040910
  Receipt Date: 20040607
  Transmission Date: 20050211
  Serious: No
  Sender: FDA-Public Use
  Company Number: 2004217639US

PATIENT
  Age: 61 Year
  Sex: Female
  Weight: 62.6 kg

DRUGS (1)
  1. BEXTRA [Suspect]
     Indication: INFLAMMATION LOCALISED
     Dosage: 10 MG, SINGLE, UNK
     Dates: start: 20040528, end: 20040529

REACTIONS (2)
  - BLISTER [None]
  - SKIN REACTION [None]
